FAERS Safety Report 4429289-X (Version None)
Quarter: 2004Q3

REPORT INFORMATION
  Report Type: 
  Country: None (occurrence: None)
  Receive Date: 20040818
  Receipt Date: 20040818
  Transmission Date: 20050211
  Serious: Yes (Disabling)
  Sender: FDA-Public Use
  Company Number: None

PATIENT
  Age: 49 Year
  Sex: Female
  Weight: 98.2 kg

DRUGS (2)
  1. PREDNISONE [Suspect]
     Indication: ASTHMA
     Dosage: ORAL
     Route: 048
  2. PREDNISONE [Suspect]
     Indication: CHRONIC OBSTRUCTIVE AIRWAYS DISEASE
     Dosage: ORAL
     Route: 048

REACTIONS (4)
  - ACTIVITIES OF DAILY LIVING IMPAIRED [None]
  - ASEPTIC NECROSIS BONE [None]
  - DIFFICULTY IN WALKING [None]
  - PAIN [None]
